FAERS Safety Report 4590215-4 (Version None)
Quarter: 2005Q1

REPORT INFORMATION
  Report Type: 
  Country: None (occurrence: None)
  Receive Date: 20050217
  Receipt Date: 20050204
  Transmission Date: 20050727
  Serious: Yes (Hospitalization)
  Sender: FDA-Public Use
  Company Number: HQWYE941628JAN05

PATIENT
  Age: 48 Year
  Sex: Female
  Weight: 70 kg

DRUGS (8)
  1. RAPAMUNE [Suspect]
     Indication: PROPHYLAXIS AGAINST TRANSPLANT REJECTION
     Dosage: 5 MG 1X PER 1 DAY, ORAL
     Route: 048
     Dates: start: 20050114
  2. PROGRAF [Concomitant]
  3. PREDNISONE [Concomitant]
  4. ACYCLOVIR [Concomitant]
  5. MYCELEX [Concomitant]
  6. PROTONIX [Concomitant]
  7. NORVASC [Concomitant]
  8. REGLAN (METOCLOPRAMIDE  HYDROCHLORIDE0 [Concomitant]

REACTIONS (6)
  - BLOOD PHOSPHORUS DECREASED [None]
  - BRONCHOPNEUMONIA [None]
  - DIARRHOEA [None]
  - LABORATORY TEST ABNORMAL [None]
  - PNEUMONIA HAEMOPHILUS [None]
  - VOMITING [None]
